FAERS Safety Report 4614340-4 (Version None)
Quarter: 2005Q1

REPORT INFORMATION
  Report Type: 
  Country: None (occurrence: None)
  Receive Date: 20050315
  Receipt Date: 20020305
  Transmission Date: 20050727
  Serious: Yes (Hospitalization)
  Sender: FDA-Public Use
  Company Number: ENT 2002-0031

PATIENT
  Age: 68 Year
  Sex: Female

DRUGS (7)
  1. COMTESS (ENTACAPONE) [Suspect]
     Indication: PARKINSONISM
     Dosage: 200 MG ORAL
     Route: 048
     Dates: start: 20010911, end: 20020217
  2. CELEBRA [Suspect]
     Dosage: 100 MG ORAL
     Route: 048
     Dates: start: 20010901, end: 20020217
  3. FLUNITRAZEPAM [Concomitant]
  4. SINEMET DEPOT [Concomitant]
  5. MADOPARK [Concomitant]
  6. BEHEPAN [Concomitant]
  7. REMERON [Concomitant]

REACTIONS (14)
  - ABDOMINAL ADHESIONS [None]
  - CARDIAC ARREST [None]
  - CARDIAC FAILURE [None]
  - EMBOLISM [None]
  - GASTRIC DISORDER [None]
  - GASTRIC PERFORATION [None]
  - GASTROINTESTINAL NECROSIS [None]
  - HYPERHIDROSIS [None]
  - HYPOTENSION [None]
  - ILEUS [None]
  - INTESTINAL GANGRENE [None]
  - PALLOR [None]
  - POOR PERIPHERAL CIRCULATION [None]
  - SHOCK [None]
